FAERS Safety Report 9483740 (Version 1)
Quarter: 2013Q3

REPORT INFORMATION
  Report Type: Spontaneous
  Country: ES (occurrence: ES)
  Receive Date: 20130828
  Receipt Date: 20130828
  Transmission Date: 20140515
  Serious: Yes (Other)
  Sender: FDA-Public Use
  Company Number: ES-ROXANE LABORATORIES, INC.-2013-RO-01451RO

PATIENT
  Age: 46 Year
  Sex: Female

DRUGS (1)
  1. NAPROXEN [Suspect]
     Route: 048

REACTIONS (2)
  - Drug hypersensitivity [Unknown]
  - Angioedema [Recovered/Resolved]
